FAERS Safety Report 5615037-4 (Version None)
Quarter: 2008Q1

REPORT INFORMATION
  Report Type: 
  Country: None (occurrence: None)
  Receive Date: 20080201
  Receipt Date: 20080118
  Transmission Date: 20080703
  Serious: Yes (Death, Hospitalization)
  Sender: FDA-Public Use
  Company Number: M7002-00632-CLI-US

PATIENT
  Age: 40 Year
  Sex: Male
  Weight: 82 kg

DRUGS (6)
  1. ONTAK [Suspect]
     Indication: LYMPHOMA
     Dosage: 1422 MCG, INTRAVENOUS INFUSION
     Route: 042
     Dates: start: 20080114
  2. CYCLOPHOSPHAMIDE [Concomitant]
  3. DOXORUBIENE (DOXORUBICIN HYDROCHLORIDE) [Concomitant]
  4. VINCRISTINE [Concomitant]
  5. PREDNISONE TAB [Concomitant]
  6. NEULASTA [Concomitant]

REACTIONS (7)
  - BLOOD ALKALINE PHOSPHATASE INCREASED [None]
  - BLOOD LACTATE DEHYDROGENASE INCREASED [None]
  - DIZZINESS [None]
  - GENERALISED OEDEMA [None]
  - INSOMNIA [None]
  - PAIN [None]
  - VOMITING [None]
